FAERS Safety Report 9643455 (Version 1)
Quarter: 2013Q4

REPORT INFORMATION
  Report Type: Spontaneous
  Country: US (occurrence: US)
  Receive Date: 20131024
  Receipt Date: 20131024
  Transmission Date: 20140711
  Serious: Yes (Hospitalization, Other)
  Sender: FDA-Public Use
  Company Number: US-TEVA-440001USA

PATIENT
  Age: 19 Year
  Sex: Male

DRUGS (5)
  1. CITALOPRAM [Suspect]
     Route: 048
  2. CITALOPRAM [Suspect]
     Route: 048
  3. LAMOTRIGINE [Suspect]
     Route: 048
  4. ARIPIPRAZOLE [Concomitant]
     Route: 048
  5. LORAZEPAM [Concomitant]
     Route: 048

REACTIONS (7)
  - Ventricular tachycardia [Recovered/Resolved]
  - Electrocardiogram QRS complex prolonged [Recovered/Resolved]
  - Bundle branch block right [Recovered/Resolved]
  - Serotonin syndrome [Recovered/Resolved]
  - Intentional overdose [Recovered/Resolved]
  - Self injurious behaviour [Recovered/Resolved]
  - Unresponsive to stimuli [Recovered/Resolved]
